FAERS Safety Report 17117117 (Version 1)
Quarter: 2019Q4

REPORT INFORMATION
  Report Type: Spontaneous
  Country: IN (occurrence: IN)
  Receive Date: 20191205
  Receipt Date: 20191205
  Transmission Date: 20200122
  Serious: Yes (Life-Threatening, Hospitalization, Other)
  Sender: FDA-Public Use
  Company Number: IN-AMGEN-INDSP2019199960

PATIENT
  Sex: Male
  Weight: 1.76 kg

DRUGS (10)
  1. NIFEDIPINE. [Concomitant]
     Active Substance: NIFEDIPINE
     Indication: EXPOSURE DURING PREGNANCY
     Dosage: 10 MILLIGRAM, QD
     Route: 064
  2. DEXAMETHASONE. [Concomitant]
     Active Substance: DEXAMETHASONE
     Dosage: 6 MILLIGRAM, Q6H
     Route: 064
     Dates: start: 2018
  3. THYROXINE [Concomitant]
     Active Substance: LEVOTHYROXINE
     Indication: EXPOSURE DURING PREGNANCY
     Dosage: 75 MICROGRAM, QD
     Route: 064
  4. CYCLOPHOSPHAMIDE. [Concomitant]
     Active Substance: CYCLOPHOSPHAMIDE
     Indication: EXPOSURE DURING PREGNANCY
     Dosage: 800 MILLIGRAM, Q3WK
     Route: 064
     Dates: start: 201807
  5. FILGRASTIM [Suspect]
     Active Substance: FILGRASTIM
     Indication: EXPOSURE DURING PREGNANCY
     Dosage: UNK
     Route: 064
     Dates: start: 201807
  6. DOCETAXEL. [Concomitant]
     Active Substance: DOCETAXEL
     Indication: EXPOSURE DURING PREGNANCY
     Dosage: 100 MICROGRAM, Q3WK
     Route: 064
     Dates: start: 201807
  7. DOXORUBICIN [Concomitant]
     Active Substance: DOXORUBICIN
     Indication: EXPOSURE DURING PREGNANCY
     Dosage: 80 MILLIGRAM, Q3WK
     Route: 064
     Dates: start: 201807
  8. ONDANSETRON [Concomitant]
     Active Substance: ONDANSETRON
     Indication: EXPOSURE DURING PREGNANCY
     Dosage: 8 MILLIGRAM, BID
     Route: 064
     Dates: start: 201807
  9. RANITIDINE. [Concomitant]
     Active Substance: RANITIDINE
     Indication: EXPOSURE DURING PREGNANCY
     Dosage: 50 MILLIGRAM, BID
     Route: 064
     Dates: start: 201807
  10. DEXAMETHASONE. [Concomitant]
     Active Substance: DEXAMETHASONE
     Indication: EXPOSURE DURING PREGNANCY
     Dosage: 8 MILLIGRAM, BID
     Route: 064
     Dates: start: 201807, end: 2018

REACTIONS (1)
  - Premature baby [Unknown]

NARRATIVE: CASE EVENT DATE: 2018
